FAERS Safety Report 6502073-9 (Version None)
Quarter: 2009Q4

REPORT INFORMATION
  Report Type: 
  Country: None (occurrence: None)
  Receive Date: 20091214
  Receipt Date: 20091207
  Transmission Date: 20100525
  Serious: Yes (Hospitalization)
  Sender: FDA-Public Use
  Company Number: 2009SP040096

PATIENT
  Age: 66 Year
  Sex: Female

DRUGS (7)
  1. PEG-INTRON [Suspect]
     Indication: HEPATITIS C
     Dosage: QW; SC; 60 MCG;QW;SC
     Route: 058
     Dates: start: 20080825, end: 20081116
  2. PEG-INTRON [Suspect]
     Indication: HEPATITIS C
     Dosage: QW; SC; 60 MCG;QW;SC
     Route: 058
     Dates: start: 20081117, end: 20090720
  3. RIBAVIRIN [Suspect]
     Indication: HEPATITIS C
     Dosage: QD; PO; 1000;QD;PO
     Route: 048
     Dates: start: 20080825, end: 20090111
  4. RIBAVIRIN [Suspect]
     Indication: HEPATITIS C
     Dosage: QD; PO; 1000;QD;PO
     Route: 048
     Dates: start: 20090112, end: 20090720
  5. BLINDED ELTROMBOPAG (ELTROMBOPAG) [Suspect]
     Indication: THROMBOCYTOPENIA
     Dosage: QD;PO; 100 MG;QD;PO
     Route: 048
     Dates: start: 20080825, end: 20081020
  6. BLINDED ELTROMBOPAG (ELTROMBOPAG) [Suspect]
     Indication: THROMBOCYTOPENIA
     Dosage: QD;PO; 100 MG;QD;PO
     Route: 048
     Dates: start: 20081021, end: 20090720
  7. ELTROMBOPAG (ELTROMBOPAG) [Suspect]
     Indication: THROMBOCYTOPENIA
     Dosage: 25 MG;QD;PO
     Route: 048
     Dates: start: 20080806, end: 20080825

REACTIONS (2)
  - AMYLOIDOSIS [None]
  - PNEUMONIA [None]
